FAERS Safety Report 4828803-X (Version None)
Quarter: 2005Q4

REPORT INFORMATION
  Report Type: 
  Country: None (occurrence: None)
  Receive Date: 20051014
  Receipt Date: 20050808
  Transmission Date: 20060501
  Serious: No
  Sender: FDA-Public Use
  Company Number: 2005SP001351

PATIENT
  Age: 47 Year
  Sex: Female

DRUGS (11)
  1. LUNESTA [Suspect]
     Indication: INSOMNIA
     Dosage: 3 MG; HS; ORAL
     Route: 048
     Dates: start: 20050607, end: 20050601
  2. NEURONTIN [Concomitant]
  3. LEXAPRO [Concomitant]
  4. OXYCONTIN [Concomitant]
  5. BENICAR [Concomitant]
  6. NEXIUM [Concomitant]
  7. SYNTHROID [Concomitant]
  8. ESTROGENS CONJUGATED [Concomitant]
  9. OXYCODONE [Concomitant]
  10. CRESTOR [Concomitant]
  11. AMBIEN [Concomitant]

REACTIONS (1)
  - DYSGEUSIA [None]
